FAERS Safety Report 5532623-0 (Version None)
Quarter: 2007Q4

REPORT INFORMATION
  Report Type: 
  Country: None (occurrence: None)
  Receive Date: 20071203
  Receipt Date: 20071120
  Transmission Date: 20080405
  Serious: No
  Sender: FDA-Public Use
  Company Number: US-BOEHRINGER INGELHEIM PHARMACEUTICALS, INC.-2007-BP-25011BP

PATIENT
  Sex: Male

DRUGS (2)
  1. SPIRIVA [Suspect]
  2. ADVAIR DISKUS 100/50 [Concomitant]

REACTIONS (2)
  - ASTHMA [None]
  - NOCTURNAL DYSPNOEA [None]
